FAERS Safety Report 12166845 (Version 2)
Quarter: 2016Q1

REPORT INFORMATION
  Report Type: Spontaneous
  Country: JP (occurrence: JP)
  Receive Date: 20160310
  Receipt Date: 20160323
  Transmission Date: 20160526
  Serious: Yes (Death, Life-Threatening)
  Sender: FDA-Public Use
  Company Number: JP-ROCHE-1723521

PATIENT
  Age: 46 Year
  Sex: Male
  Weight: 61 kg

DRUGS (1)
  1. AVASTIN [Suspect]
     Active Substance: BEVACIZUMAB
     Indication: ANAPLASTIC OLIGODENDROGLIOMA
     Dosage: LAST DOSE ON 17/JUL/2015
     Route: 041
     Dates: start: 20141010

REACTIONS (4)
  - Anaplastic oligodendroglioma [Fatal]
  - Embolism venous [Not Recovered/Not Resolved]
  - Proteinuria [Not Recovered/Not Resolved]
  - Brain stem haemorrhage [Fatal]

NARRATIVE: CASE EVENT DATE: 2015
